FAERS Safety Report 24732597 (Version 2)
Quarter: 2024Q4

REPORT INFORMATION
  Report Type: Spontaneous
  Country: IT (occurrence: IT)
  Receive Date: 20241213
  Receipt Date: 20241216
  Transmission Date: 20250115
  Serious: Yes (Death, Life-Threatening, Hospitalization, Other)
  Sender: BRISTOL-MYERS SQUIBB COMPANY
  Company Number: None

PATIENT
  Age: 69 Year
  Sex: Male
  Weight: 75 kg

DRUGS (1)
  1. OPDIVO [Suspect]
     Active Substance: NIVOLUMAB
     Indication: Head and neck cancer stage IV
     Dosage: 240 MG EVERY 14 DAYS
     Route: 042
     Dates: start: 20240506, end: 20240603

REACTIONS (5)
  - Autoimmune myocarditis [Fatal]
  - Autoimmune hepatitis [Recovered/Resolved with Sequelae]
  - Diarrhoea [Recovered/Resolved]
  - Pneumonia bacterial [Recovered/Resolved]
  - Respiratory failure [Recovered/Resolved]

NARRATIVE: CASE EVENT DATE: 20240613
